FAERS Safety Report 10748494 (Version 2)
Quarter: 2015Q1

REPORT INFORMATION
  Report Type: Spontaneous
  Country: LV (occurrence: LV)
  Receive Date: 20150129
  Receipt Date: 20150323
  Transmission Date: 20150721
  Serious: Yes (Other)
  Sender: FDA-Public Use
  Company Number: LV-GLAXOSMITHKLINE INC.-LV2015GSK008415

PATIENT
  Age: 85 Year
  Sex: Male

DRUGS (6)
  1. ACUZIDE [Concomitant]
     Dosage: 1 DF, QD
     Route: 048
  2. COMBODART [Suspect]
     Active Substance: DUTASTERIDE\TAMSULOSIN
     Indication: BENIGN PROSTATIC HYPERPLASIA
     Dosage: 1 DF, QD
     Route: 048
     Dates: start: 20140814, end: 20141125
  3. LERCAPIN [Concomitant]
     Active Substance: LERCANIDIPINE HYDROCHLORIDE
     Indication: CARDIAC FAILURE
     Dosage: 1 DF, QD
     Route: 048
  4. SOMNOL [Concomitant]
     Active Substance: APOMORPHINE HYDROCHLORIDE\HEXOBARBITAL\NIACIN\PHENOBARBITAL\SCOPOLAMINE HYDROBROMIDE
     Dosage: 1 UNK, QD
     Route: 048
  5. TRIFAS (NOS) [Concomitant]
     Indication: CARDIAC FAILURE
     Dosage: 1 DF, QOD
  6. CONCOR [Concomitant]
     Active Substance: BISOPROLOL FUMARATE
     Indication: CORONARY ARTERY DISEASE
     Dosage: 1 DF, QD
     Route: 048

REACTIONS (2)
  - Urinary retention [Recovered/Resolved]
  - Rash pruritic [Not Recovered/Not Resolved]

NARRATIVE: CASE EVENT DATE: 20141125
